FAERS Safety Report 4425147-5 (Version None)
Quarter: 2004Q3

REPORT INFORMATION
  Report Type: 
  Country: None (occurrence: None)
  Receive Date: 20040813
  Receipt Date: 20040810
  Transmission Date: 20050211
  Serious: Yes (Death)
  Sender: FDA-Public Use
  Company Number: US-JNJFOC-20040803674

PATIENT
  Age: 47 Year
  Sex: Male

DRUGS (4)
  1. RISPERDAL [Suspect]
     Route: 049
  2. RISPERDAL [Suspect]
     Indication: SCHIZOAFFECTIVE DISORDER
     Route: 049
  3. ZOLOFT [Concomitant]
     Indication: SCHIZOAFFECTIVE DISORDER
     Route: 049
  4. TRAZODONE [Concomitant]
     Indication: SCHIZOAFFECTIVE DISORDER
     Route: 049

REACTIONS (1)
  - DEATH [None]
